FAERS Safety Report 8762366 (Version 1)
Quarter: 2012Q4

REPORT INFORMATION
  Report Type: 
  Country: JP (occurrence: JP)
  Receive Date: 20120830
  Receipt Date: 20120830
  Transmission Date: 20130627
  Serious: Yes (Death, Congenital Anomaly)
  Sender: FDA-Public Use
  Company Number: PHHY2012JP074571

PATIENT

DRUGS (1)
  1. THIAMAZOLE [Suspect]
     Route: 064

REACTIONS (4)
  - Death [Fatal]
  - Small intestinal obstruction [Unknown]
  - Oesophageal atresia [Unknown]
  - Foetal exposure during pregnancy [Unknown]
